FAERS Safety Report 7400062-3 (Version None)
Quarter: 2011Q2

REPORT INFORMATION
  Report Type: 
  Country: None (occurrence: None)
  Receive Date: 20110407
  Receipt Date: 20110331
  Transmission Date: 20111010
  Serious: Yes (Other)
  Sender: FDA-Public Use
  Company Number: GB-PFIZER INC-2011072489

PATIENT
  Sex: Male

DRUGS (2)
  1. SULFASALAZINE [Suspect]
  2. METHOTREXATE SODIUM [Suspect]

REACTIONS (3)
  - HEPATITIS C [None]
  - BONE EROSION [None]
  - SERONEGATIVE ARTHRITIS [None]
